FAERS Safety Report 16256852 (Version 1)
Quarter: 2019Q2

REPORT INFORMATION
  Report Type: Spontaneous
  Country: IE (occurrence: IE)
  Receive Date: 20190430
  Receipt Date: 20190430
  Transmission Date: 20190711
  Serious: Yes (Other)
  Sender: FDA-Public Use
  Company Number: IE-MYLANLABS-2019M1040384

PATIENT
  Age: 66 Year
  Sex: Female

DRUGS (3)
  1. VALSARTAN. [Suspect]
     Active Substance: VALSARTAN
     Indication: PRODUCT USED FOR UNKNOWN INDICATION
     Dosage: UNK
     Route: 065
  2. DIOVAN [Suspect]
     Active Substance: VALSARTAN
     Indication: BLOOD PRESSURE ABNORMAL
     Dosage: 40 MG, QD (80 MG TAB) (HALF A TAB)
     Route: 048
  3. DIOVAN [Suspect]
     Active Substance: VALSARTAN
     Dosage: 1 DF, QD
     Route: 048

REACTIONS (6)
  - Headache [Unknown]
  - Kidney infection [Unknown]
  - Inappropriate schedule of product administration [Unknown]
  - Hypersensitivity [Unknown]
  - Abdominal pain upper [Unknown]
  - Wrong technique in product usage process [Unknown]
